FAERS Safety Report 4592059-6 (Version None)
Quarter: 2005Q1

REPORT INFORMATION
  Report Type: 
  Country: None (occurrence: None)
  Receive Date: 20050125
  Receipt Date: 20041008
  Transmission Date: 20050727
  Serious: No
  Sender: FDA-Public Use
  Company Number: USA040363585

PATIENT
  Age: 69 Year
  Sex: Male
  Weight: 73 kg

DRUGS (9)
  1. FORTEO [Suspect]
     Indication: OSTEOPOROSIS
     Dosage: 20 UG/1 DAY
     Dates: start: 20040101
  2. CALCIUM WITH VITAMIN D [Concomitant]
  3. HYZAAR [Concomitant]
  4. ZOCOR (SIMVASTATIN RATIOPHARM) [Concomitant]
  5. PREVACID [Concomitant]
  6. NORTRIPTYLINE HCL [Concomitant]
  7. FOSAMAX [Concomitant]
  8. ANDROGEL [Concomitant]
  9. CALCIUM GLUCONATE [Concomitant]

REACTIONS (3)
  - BLOOD CREATINE PHOSPHOKINASE INCREASED [None]
  - INJECTION SITE HAEMORRHAGE [None]
  - INJECTION SITE PAIN [None]
